FAERS Safety Report 6950685-0 (Version None)
Quarter: 2010Q3

REPORT INFORMATION
  Report Type: 
  Country: None (occurrence: None)
  Receive Date: 20100828
  Receipt Date: 20100217
  Transmission Date: 20110219
  Serious: No
  Sender: FDA-Public Use
  Company Number: US-ABBOTT-10P-163-0628084-00

PATIENT

DRUGS (1)
  1. NIASPAN [Suspect]
     Indication: BLOOD CHOLESTEROL INCREASED
     Dates: start: 20100101, end: 20100218

REACTIONS (5)
  - HEADACHE [None]
  - HOT FLUSH [None]
  - HYPOAESTHESIA [None]
  - PAIN IN EXTREMITY [None]
  - PALPITATIONS [None]
